FAERS Safety Report 10903328 (Version 1)
Quarter: 2015Q1

REPORT INFORMATION
  Report Type: Report from Study
  Country: US (occurrence: US)
  Receive Date: 20150311
  Receipt Date: 20150311
  Transmission Date: 20150721
  Serious: Yes (Hospitalization)
  Sender: FDA-Public Use
  Company Number: US-ROCHE-1550217

PATIENT
  Age: 59 Year
  Sex: Female
  Weight: 62 kg

DRUGS (4)
  1. DOCETAXEL. [Suspect]
     Active Substance: DOCETAXEL
     Indication: SQUAMOUS CELL CARCINOMA OF HEAD AND NECK
     Dosage: OVER 1 HOUR; DAY 1?MOST RECENT DOSE WAS ADMINISTERED ON 03/FEB/2015- 70 MG
     Route: 042
     Dates: start: 20150106
  2. NEULASTA [Suspect]
     Active Substance: PEGFILGRASTIM
     Indication: PROPHYLAXIS
     Dosage: INITIATED WITH CYCLE 2 CHEMOTHERAPY
     Route: 065
  3. CARBOPLATIN. [Suspect]
     Active Substance: CARBOPLATIN
     Indication: SQUAMOUS CELL CARCINOMA OF HEAD AND NECK
     Dosage: DOSE 6 AUC OVER 30 MINUTES, DAY 1?MOST RECENT DOSE WAS ADMINISTERED ON 03/FEB/2015- 486.5 MG
     Route: 042
     Dates: start: 20150106
  4. BEVACIZUMAB [Suspect]
     Active Substance: BEVACIZUMAB
     Indication: SQUAMOUS CELL CARCINOMA OF HEAD AND NECK
     Dosage: OVER 30 TO 90 MINUTES; DAY 1?MOST RECENT DOSE WAS ADMINISTERED ON 03/FEB/2015; 952 MG
     Route: 042
     Dates: start: 20150106

REACTIONS (1)
  - Pyrexia [Recovered/Resolved]

NARRATIVE: CASE EVENT DATE: 20150209
